FAERS Safety Report 6437610-6 (Version None)
Quarter: 2009Q4

REPORT INFORMATION
  Report Type: 
  Country: None (occurrence: None)
  Receive Date: 20091112
  Receipt Date: 20091030
  Transmission Date: 20100525
  Serious: Yes (Other)
  Sender: FDA-Public Use
  Company Number: DE-ELI_LILLY_AND_COMPANY-DE200911000347

PATIENT
  Sex: Female
  Weight: 58 kg

DRUGS (5)
  1. EFFIENT [Suspect]
     Dosage: 10 MG, DAILY (1/D)
     Route: 048
  2. SIMVASTATIN [Concomitant]
     Dosage: UNK, UNKNOWN
  3. BISOPROLOL [Concomitant]
     Dosage: 5 MG, UNKNOWN
  4. RANITIDINE HCL [Concomitant]
     Dosage: UNK, UNKNOWN
  5. LEVOTHYROXINE SODIUM [Concomitant]
     Dosage: UNK, UNKNOWN

REACTIONS (4)
  - CARDIOVASCULAR INSUFFICIENCY [None]
  - FLUSHING [None]
  - LOCAL SWELLING [None]
  - PRURITUS [None]
